FAERS Safety Report 10150490 (Version 1)
Quarter: 2014Q2

REPORT INFORMATION
  Report Type: Spontaneous
  Country: US (occurrence: US)
  Receive Date: 20140502
  Receipt Date: 20140502
  Transmission Date: 20141212
  Serious: No
  Sender: FDA-Public Use
  Company Number: US-ASTRAZENECA-2013SE89324

PATIENT
  Age: 71 Year
  Sex: Female
  Weight: 65.8 kg

DRUGS (6)
  1. SYMBICORT [Suspect]
     Indication: ASTHMA
     Dosage: 160/4.5 UG, 2PUFFS BID
     Route: 055
     Dates: start: 2010
  2. SYMBICORT [Suspect]
     Indication: CHRONIC OBSTRUCTIVE PULMONARY DISEASE
     Dosage: 160/4.5 UG, 2PUFFS BID
     Route: 055
     Dates: start: 2010
  3. PRILOSEC OTC [Suspect]
     Indication: DYSPEPSIA
     Route: 048
     Dates: start: 2012
  4. TUMS [Concomitant]
     Indication: DYSPEPSIA
     Dosage: NOT REPORTED NR
  5. SINGULAIR GENERIC [Concomitant]
     Indication: ASTHMA
  6. AMBIEN GENERIC [Concomitant]
     Indication: SLEEP DISORDER
     Dosage: 5MG OR 2.5MG

REACTIONS (3)
  - Limb injury [Unknown]
  - Haemorrhage [Unknown]
  - Limb injury [Unknown]
